FAERS Safety Report 17165725 (Version 2)
Quarter: 2020Q1

REPORT INFORMATION
  Report Type: Spontaneous
  Country: CH (occurrence: CH)
  Receive Date: 20191217
  Receipt Date: 20200113
  Transmission Date: 20200409
  Serious: Yes (Death)
  Sender: FDA-Public Use
  Company Number: CH-PFIZER INC-2019542739

PATIENT
  Age: 68 Year
  Sex: Male
  Weight: 85 kg

DRUGS (3)
  1. IBRANCE [Suspect]
     Active Substance: PALBOCICLIB
     Indication: PANCREATIC CARCINOMA METASTATIC
     Dosage: 125 MG, 1X/DAY
     Route: 048
     Dates: start: 20191101, end: 20191129
  2. INSULIN [Concomitant]
     Active Substance: INSULIN NOS
     Indication: DIABETES MELLITUS
     Dosage: UNK
     Route: 058
  3. CREON [Concomitant]
     Active Substance: PANCRELIPASE AMYLASE\PANCRELIPASE LIPASE\PANCRELIPASE PROTEASE
     Dosage: AFTER MEAL
     Route: 048

REACTIONS (23)
  - Red cell distribution width increased [Unknown]
  - Neutrophil count increased [Unknown]
  - C-reactive protein increased [Unknown]
  - Glomerular filtration rate increased [Unknown]
  - Product use in unapproved indication [Unknown]
  - Blood calcium decreased [Unknown]
  - Blood creatinine decreased [Unknown]
  - Immature granulocyte count increased [Unknown]
  - General physical health deterioration [Fatal]
  - Haemoglobin decreased [Unknown]
  - Red blood cell count decreased [Unknown]
  - Basophil count increased [Unknown]
  - Neoplasm progression [Fatal]
  - Blood glucose increased [Unknown]
  - Blood alkaline phosphatase increased [Unknown]
  - Monocyte count increased [Unknown]
  - Off label use [Unknown]
  - Blood potassium decreased [Unknown]
  - Blood albumin decreased [Unknown]
  - Haematocrit decreased [Unknown]
  - Blood sodium decreased [Unknown]
  - Platelet count decreased [Unknown]
  - Lymphocyte count decreased [Unknown]

NARRATIVE: CASE EVENT DATE: 201911
